FAERS Safety Report 15489436 (Version 1)
Quarter: 2018Q4

REPORT INFORMATION
  Report Type: Spontaneous
  Country: CO (occurrence: CO)
  Receive Date: 20181011
  Receipt Date: 20181011
  Transmission Date: 20190205
  Serious: Yes (Other)
  Sender: FDA-Public Use
  Company Number: CO-PFIZER INC-2018405915

PATIENT
  Sex: Male

DRUGS (1)
  1. SOLU-MEDROL [Suspect]
     Active Substance: METHYLPREDNISOLONE SODIUM SUCCINATE
     Indication: BASEDOW^S DISEASE
     Dosage: UNK

REACTIONS (4)
  - Product use in unapproved indication [Unknown]
  - Strabismus [Unknown]
  - Optic neuropathy [Unknown]
  - Exophthalmos [Unknown]
